FAERS Safety Report 8273934-8 (Version None)
Quarter: 2012Q2

REPORT INFORMATION
  Report Type: 
  Country: None (occurrence: None)
  Receive Date: 20120411
  Receipt Date: 20120330
  Transmission Date: 20120825
  Serious: Yes (Other)
  Sender: FDA-Public Use
  Company Number: US-ELI_LILLY_AND_COMPANY-US201104000476

PATIENT
  Sex: Female

DRUGS (8)
  1. FORTEO [Suspect]
     Dosage: 20 UG, QD
     Route: 065
     Dates: start: 20110101
  2. FORTEO [Suspect]
     Dosage: 20 UG, QD
  3. FORTEO [Suspect]
     Indication: OSTEOPOROSIS
     Dosage: 20 UG, QD
     Route: 065
     Dates: start: 20110316
  4. FORTEO [Suspect]
     Dosage: 20 UG, QD
     Route: 065
     Dates: end: 20110601
  5. FORTEO [Suspect]
     Dosage: 20 UG, QD
  6. FORTEO [Suspect]
     Dosage: 20 UG, QD
  7. FORTEO [Suspect]
     Dosage: 20 UG, QD
     Route: 065
  8. FORTEO [Suspect]
     Dosage: 20 UG, QD

REACTIONS (22)
  - PAIN IN EXTREMITY [None]
  - INJECTION SITE HAEMATOMA [None]
  - ULCER [None]
  - ARTHRITIS [None]
  - MYALGIA [None]
  - ANXIETY [None]
  - VITAMIN D DECREASED [None]
  - CARDIAC PACEMAKER REPLACEMENT [None]
  - CONSTIPATION [None]
  - SKIN DISORDER [None]
  - ASTHENIA [None]
  - BLOOD MAGNESIUM DECREASED [None]
  - INJECTION SITE HYPERTROPHY [None]
  - DIZZINESS [None]
  - SLEEP DISORDER [None]
  - BACK PAIN [None]
  - BLOOD PRESSURE ABNORMAL [None]
  - ABDOMINAL DISTENSION [None]
  - FEELING COLD [None]
  - INJECTION SITE HAEMORRHAGE [None]
  - LIMB DISCOMFORT [None]
  - FATIGUE [None]
